FAERS Safety Report 19704781 (Version 1)
Quarter: 2021Q3

REPORT INFORMATION
  Report Type: Spontaneous
  Country: US (occurrence: US)
  Receive Date: 20210816
  Receipt Date: 20210816
  Transmission Date: 20211014
  Serious: No
  Sender: FDA-Public Use
  Company Number: US-BAUSCH-BL-2021-026477

PATIENT
  Age: 63 Year
  Sex: Female
  Weight: 72.64 kg

DRUGS (3)
  1. ALAWAY [Suspect]
     Active Substance: KETOTIFEN FUMARATE
     Indication: HYPERSENSITIVITY
     Dosage: ONE DROP IN EACH EYE
     Route: 047
     Dates: start: 2021, end: 2021
  2. ALAWAY [Suspect]
     Active Substance: KETOTIFEN FUMARATE
     Dosage: RE?ATTEMPT WAS MADE APPROXIMATELY 3 TO 4 DAYS LATER
     Route: 047
     Dates: start: 2021, end: 2021
  3. ALLEGRA [Concomitant]
     Active Substance: FEXOFENADINE HYDROCHLORIDE
     Indication: PRODUCT USED FOR UNKNOWN INDICATION
     Route: 048

REACTIONS (1)
  - Eye irritation [Unknown]

NARRATIVE: CASE EVENT DATE: 2021
